FAERS Safety Report 8607422 (Version 4)
Quarter: 2014Q1

REPORT INFORMATION
  Report Type: Spontaneous
  Country: US (occurrence: US)
  Receive Date: 20120611
  Receipt Date: 20140108
  Transmission Date: 20141002
  Serious: Yes (Disabling, Other)
  Sender: FDA-Public Use
  Company Number: US-ASTRAZENECA-2012SE35006

PATIENT
  Age: 58 Year
  Sex: Female
  Weight: 125.2 kg

DRUGS (24)
  1. NEXIUM [Suspect]
     Indication: GASTROOESOPHAGEAL REFLUX DISEASE
     Route: 048
     Dates: start: 2004, end: 2009
  2. NEXIUM [Suspect]
     Indication: GASTROOESOPHAGEAL REFLUX DISEASE
     Route: 048
     Dates: start: 20070911
  3. OMEPRAZOLE/ PRILOSEC [Suspect]
     Route: 048
     Dates: start: 2008
  4. OMEPRAZOLE/ PRILOSEC [Suspect]
     Dosage: ONCE DAILY
     Route: 048
     Dates: start: 20060929
  5. TUMS [Concomitant]
     Dates: start: 1992
  6. CYMBALTA [Concomitant]
  7. TEMAZEPAM/ RESTORIL [Concomitant]
  8. OXYCODONE [Concomitant]
  9. CYCLOBENZAPRINE [Concomitant]
  10. CYCLOBENZAPRINE [Concomitant]
     Dates: start: 20030314
  11. PERCOCET [Concomitant]
  12. MS CONTIN [Concomitant]
  13. GABAPENTIN [Concomitant]
  14. MOBIC [Concomitant]
  15. TOPAMAX [Concomitant]
  16. PREVACID [Concomitant]
  17. B-COMPLEX [Concomitant]
     Route: 048
     Dates: start: 20070911
  18. MULTIVITAMIN AND MINERAL [Concomitant]
     Route: 048
     Dates: start: 20070911
  19. TRAMADOL HCL [Concomitant]
     Route: 048
     Dates: start: 20040409
  20. PRILOSEC OTC [Concomitant]
     Route: 048
     Dates: start: 20040526
  21. METHYLPREDNISOLONE [Concomitant]
     Dates: start: 20030314
  22. CARISOPRODOL [Concomitant]
     Dates: start: 20030801
  23. FLUOXETINE [Concomitant]
     Dates: start: 20050510
  24. VIAGRA [Concomitant]
     Dates: start: 20060712

REACTIONS (11)
  - Back disorder [Unknown]
  - Intervertebral disc disorder [Unknown]
  - Osteoporosis [Unknown]
  - Spinal fracture [Unknown]
  - Post laminectomy syndrome [Unknown]
  - Intervertebral disc degeneration [Unknown]
  - Osteopenia [Unknown]
  - Spinal osteoarthritis [Unknown]
  - Vitamin D deficiency [Unknown]
  - Hyperparathyroidism [Unknown]
  - Depression [Unknown]
